FAERS Safety Report 16359972 (Version 1)
Quarter: 2019Q2

REPORT INFORMATION
  Report Type: Spontaneous
  Country: CA (occurrence: CA)
  Receive Date: 20190528
  Receipt Date: 20190528
  Transmission Date: 20190711
  Serious: Yes (Death, Hospitalization, Other)
  Sender: FDA-Public Use
  Company Number: CA-LUPIN PHARMACEUTICALS INC.-2019-03155

PATIENT
  Age: 74 Year
  Sex: Female

DRUGS (3)
  1. NIFEDIPINE. [Concomitant]
     Active Substance: NIFEDIPINE
     Indication: HYPERTENSION
     Dosage: 30 MILLIGRAM, QD
     Route: 065
  2. HYDROXYCHLOROQUINE [Suspect]
     Active Substance: HYDROXYCHLOROQUINE
     Indication: SYSTEMIC LUPUS ERYTHEMATOSUS
     Dosage: 400 MILLIGRAM, QD (4 MG/KG)
     Route: 065
  3. IRBESARTAN. [Concomitant]
     Active Substance: IRBESARTAN
     Indication: HYPERTENSION
     Dosage: 150 MILLIGRAM, QD
     Route: 065

REACTIONS (8)
  - Atrioventricular block first degree [Unknown]
  - Atrial fibrillation [Unknown]
  - Cardiac failure [Fatal]
  - Cardiomyopathy [Unknown]
  - Atrial flutter [Unknown]
  - Septic shock [Fatal]
  - Pulmonary haemorrhage [Unknown]
  - Skin hyperpigmentation [Unknown]
